FAERS Safety Report 5863858-5 (Version None)
Quarter: 2008Q3

REPORT INFORMATION
  Report Type: 
  Country: None (occurrence: None)
  Receive Date: 20080827
  Receipt Date: 20080819
  Transmission Date: 20090109
  Serious: Yes (Hospitalization)
  Sender: FDA-Public Use
  Company Number: 1000000216

PATIENT
  Age: 55 Year
  Sex: Female

DRUGS (6)
  1. PROPRANOLOL [Suspect]
     Indication: VARICES OESOPHAGEAL
     Dosage: 160 MG
  2. VENLAFAXINE HCL [Suspect]
     Indication: DEPRESSION
     Dosage: 75 MG
  3. MONOSODIUM ALENDRONATE [Concomitant]
  4. CALCIUM [Concomitant]
  5. COLECALCIFEROL [Concomitant]
  6. PANTOPRAZOLE [Concomitant]

REACTIONS (7)
  - ACUTE RESPIRATORY FAILURE [None]
  - DRUG INTERACTION [None]
  - HEPATIC CIRRHOSIS [None]
  - OEDEMA PERIPHERAL [None]
  - OESOPHAGEAL VARICES HAEMORRHAGE [None]
  - PNEUMONIA MYCOPLASMAL [None]
  - PNEUMONITIS [None]
